FAERS Safety Report 11934022 (Version 1)
Quarter: 2016Q1

REPORT INFORMATION
  Report Type: Spontaneous
  Country: FR (occurrence: FR)
  Receive Date: 20160121
  Receipt Date: 20160121
  Transmission Date: 20160526
  Serious: Yes (Other)
  Sender: FDA-Public Use
  Company Number: FR-JNJFOC-20160113235

PATIENT
  Sex: Female

DRUGS (2)
  1. DUROGESIC [Suspect]
     Active Substance: FENTANYL
     Indication: PAIN
     Dosage: 2 PATCHES OF 25 UG/HR
     Route: 062
     Dates: start: 20130104, end: 20130104
  2. DUROGESIC [Suspect]
     Active Substance: FENTANYL
     Indication: PAIN
     Dosage: ONE PATCH
     Route: 062
     Dates: start: 20130104, end: 20130104

REACTIONS (4)
  - Somnolence [Recovered/Resolved]
  - Drug administration error [Unknown]
  - Aspiration [Recovered/Resolved]
  - Vomiting [Recovered/Resolved]

NARRATIVE: CASE EVENT DATE: 20130104
